FAERS Safety Report 7439302-3 (Version None)
Quarter: 2011Q2

REPORT INFORMATION
  Report Type: 
  Country: None (occurrence: None)
  Receive Date: 20110427
  Receipt Date: 20110426
  Transmission Date: 20111010
  Serious: No
  Sender: FDA-Public Use
  Company Number: US-PFIZER INC-2011089991

PATIENT
  Sex: Female
  Weight: 49.887 kg

DRUGS (1)
  1. PRISTIQ [Suspect]
     Indication: ANXIETY
     Dosage: UNK
     Route: 048
     Dates: start: 20110101

REACTIONS (4)
  - DRUG INTOLERANCE [None]
  - WRONG TECHNIQUE IN DRUG USAGE PROCESS [None]
  - DIZZINESS [None]
  - DIARRHOEA [None]
